FAERS Safety Report 4834363-X (Version None)
Quarter: 2005Q4

REPORT INFORMATION
  Report Type: 
  Country: None (occurrence: None)
  Receive Date: 20051122
  Receipt Date: 20051003
  Transmission Date: 20060501
  Serious: Yes (Hospitalization, Other)
  Sender: FDA-Public Use
  Company Number: NZ-MERCK-0510NZL00005

PATIENT
  Age: 71 Year
  Sex: Female
  Weight: 80 kg

DRUGS (13)
  1. VIOXX [Suspect]
     Indication: OSTEOARTHRITIS
     Route: 048
     Dates: start: 20020128, end: 20030926
  2. CALCIUM (UNSPECIFIED) [Concomitant]
     Route: 065
  3. ATENOLOL [Concomitant]
     Route: 065
  4. RANITIDINE HYDROCHLORIDE [Concomitant]
     Route: 065
  5. CILAZAPRIL [Concomitant]
     Route: 065
  6. ACETAMINOPHEN AND CODEINE PHOSPHATE [Concomitant]
     Route: 065
  7. FELODIPINE [Concomitant]
     Route: 065
  8. FUROSEMIDE [Concomitant]
     Route: 065
  9. CETIRIZINE HYDROCHLORIDE [Concomitant]
     Route: 065
  10. SIMVASTATIN [Concomitant]
     Route: 065
  11. DEXAMETHASONE AND FRAMYCETIN SULFATE AND GRAMICIDIN [Concomitant]
     Route: 065
  12. ASPIRIN [Concomitant]
     Route: 065
  13. RANITIDINE [Concomitant]
     Route: 065

REACTIONS (3)
  - CEREBROVASCULAR ACCIDENT [None]
  - EMBOLISM [None]
  - INFARCTION [None]
